FAERS Safety Report 25335229 (Version 1)
Quarter: 2025Q2

REPORT INFORMATION
  Report Type: Report from Study
  Country: CA (occurrence: CA)
  Receive Date: 20250520
  Receipt Date: 20250520
  Transmission Date: 20250716
  Serious: Yes (Other)
  Sender: CURRAX PHARMACEUTICALS
  Company Number: CA-BAUSCH-BL-2025-006208

PATIENT
  Age: 40 Year
  Sex: Female
  Weight: 65.76 kg

DRUGS (8)
  1. CONTRAVE [Suspect]
     Active Substance: BUPROPION HYDROCHLORIDE\NALTREXONE HYDROCHLORIDE
     Indication: Weight control
     Dosage: 2 YEARS AGO, 90/8 MG, 1 TAB QAM
     Route: 048
     Dates: start: 2023, end: 2023
  2. CONTRAVE [Suspect]
     Active Substance: BUPROPION HYDROCHLORIDE\NALTREXONE HYDROCHLORIDE
     Dosage: 90/8 MG, 1 TAB QAM AND 1 TAB QPM
     Route: 048
     Dates: start: 2023, end: 2023
  3. CONTRAVE [Suspect]
     Active Substance: BUPROPION HYDROCHLORIDE\NALTREXONE HYDROCHLORIDE
     Dosage: 90/8 MG, 2 TAB QAM AND 1 TAB QPM (1 IN 12 HR)
     Route: 048
     Dates: start: 2023, end: 2023
  4. CONTRAVE [Suspect]
     Active Substance: BUPROPION HYDROCHLORIDE\NALTREXONE HYDROCHLORIDE
     Dosage: 90/8 MG, 2 TAB QAM AND 2 TAB QPM
     Route: 048
     Dates: start: 2023
  5. CONTRAVE [Suspect]
     Active Substance: BUPROPION HYDROCHLORIDE\NALTREXONE HYDROCHLORIDE
     Dosage: 90/8 MG, 1 TAB QAM
     Route: 048
     Dates: end: 20250510
  6. SERTRALINE [Concomitant]
     Active Substance: SERTRALINE HYDROCHLORIDE
     Indication: Depression
     Dosage: APPROX. 2005 (25 MG,1 IN 1 D)
     Route: 048
     Dates: start: 2005
  7. PANTOPRAZOLE [Concomitant]
     Active Substance: PANTOPRAZOLE
     Indication: Gastrooesophageal reflux disease
     Dosage: 40 MG (40 MG,1 IN 1 D)
     Route: 048
     Dates: start: 202412
  8. SYNTHROID [Concomitant]
     Active Substance: LEVOTHYROXINE SODIUM
     Indication: Thyroid disorder
     Dosage: APPROX. 201 (25 MG,1 IN 1 D)
     Route: 048
     Dates: start: 2015

REACTIONS (3)
  - Gallbladder disorder [Unknown]
  - Ill-defined disorder [Unknown]
  - Intentional product use issue [Unknown]

NARRATIVE: CASE EVENT DATE: 20250510
